FAERS Safety Report 5827919-9 (Version None)
Quarter: 2008Q3

REPORT INFORMATION
  Report Type: 
  Country: None (occurrence: None)
  Receive Date: 20080730
  Receipt Date: 20080718
  Transmission Date: 20090109
  Serious: Yes (Other)
  Sender: FDA-Public Use
  Company Number: IE-PFIZER INC-2008060708

PATIENT
  Sex: Male

DRUGS (8)
  1. NEURONTIN [Suspect]
     Indication: PAIN
     Dosage: DAILY DOSE:900MG
     Route: 048
  2. ZOMETA [Suspect]
     Indication: PROSTATE CANCER
     Dosage: TEXT:4MG   TDD:4MG
  3. TAMSULOSIN HCL [Concomitant]
  4. CASODEX [Concomitant]
  5. PERINDOPRIL ERBUMINE [Concomitant]
  6. OXYCONTIN [Concomitant]
  7. ACETAMINOPHEN [Concomitant]
  8. DEXAMETHASONE [Concomitant]

REACTIONS (2)
  - HYPOCALCAEMIA [None]
  - MYALGIA [None]
